FAERS Safety Report 5696176-9 (Version None)
Quarter: 2008Q2

REPORT INFORMATION
  Report Type: 
  Country: None (occurrence: None)
  Receive Date: 20080407
  Receipt Date: 20080401
  Transmission Date: 20081010
  Serious: Yes (Other)
  Sender: FDA-Public Use
  Company Number: MX-AVENTIS-200812723GDDC

PATIENT
  Age: 42 Year
  Sex: Female
  Weight: 67 kg

DRUGS (5)
  1. ARAVA [Suspect]
     Route: 048
     Dates: start: 20050101, end: 20070101
  2. METHOTREXATE [Concomitant]
     Route: 048
     Dates: start: 19980101
  3. DICLOFENAC SODIUM [Concomitant]
     Route: 048
     Dates: start: 19980101
  4. TAFIL [Concomitant]
     Route: 048
  5. MESALAMINE [Concomitant]
     Indication: IRRITABLE BOWEL SYNDROME
     Route: 048

REACTIONS (5)
  - ASTERIXIS [None]
  - HEPATOTOXICITY [None]
  - OCULAR ICTERUS [None]
  - PRURITUS GENERALISED [None]
  - RASH MACULAR [None]
